FAERS Safety Report 16505621 (Version 1)
Quarter: 2019Q3

REPORT INFORMATION
  Report Type: Spontaneous
  Country: US (occurrence: US)
  Receive Date: 20190701
  Receipt Date: 20190701
  Transmission Date: 20191004
  Serious: No
  Sender: FDA-Public Use
  Company Number: US-SA-2019SA170881

PATIENT

DRUGS (1)
  1. XYZAL [Suspect]
     Active Substance: LEVOCETIRIZINE DIHYDROCHLORIDE
     Indication: HYPERSENSITIVITY
     Route: 065

REACTIONS (5)
  - Headache [Unknown]
  - Hangover [Unknown]
  - Dizziness [Unknown]
  - Somnolence [Unknown]
  - Drug ineffective [Unknown]
